FAERS Safety Report 5908939-2 (Version None)
Quarter: 2008Q4

REPORT INFORMATION
  Report Type: 
  Country: None (occurrence: None)
  Receive Date: 20081006
  Receipt Date: 20080925
  Transmission Date: 20090506
  Serious: Yes (Other)
  Sender: FDA-Public Use
  Company Number: JP-ASTRAZENECA-2008SE04534

PATIENT
  Age: 60 Year
  Sex: Male

DRUGS (3)
  1. AMIAS 4MG TABLETS [Suspect]
     Indication: HYPERTENSION
     Route: 048
     Dates: start: 20080829
  2. PHENOXYBENZAMINE HYDROCHLORIDE [Suspect]
     Indication: PHAEOCHROMOCYTOMA
     Route: 048
     Dates: start: 20080828
  3. LISINOPRIL [Concomitant]
     Route: 065

REACTIONS (1)
  - VITREOUS HAEMORRHAGE [None]
